FAERS Safety Report 6723593-8 (Version None)
Quarter: 2010Q2

REPORT INFORMATION
  Report Type: 
  Country: None (occurrence: None)
  Receive Date: 20100511
  Receipt Date: 20091209
  Transmission Date: 20101027
  Serious: Yes (Life-Threatening, Hospitalization, Other)
  Sender: FDA-Public Use
  Company Number: 062-20484-09081723

PATIENT
  Age: 44 Year
  Sex: Male
  Weight: 95 kg

DRUGS (4)
  1. INNOHEP [Suspect]
     Indication: HYPERCOAGULATION
     Dosage: SUBCUTANEOUS
     Route: 058
     Dates: start: 20000919, end: 20001003
  2. INNOHEP [Suspect]
     Indication: HYPERCOAGULATION
     Dosage: SUBCUTANEOUS
     Route: 058
     Dates: end: 20090813
  3. NOVALGIN (CAFFEINE, PARACETAMOL, PROPYPHENAZONE) [Suspect]
     Indication: PAIN MANAGEMENT
  4. NEBIDO DEPOT (TESTOSTERONE UNDECANOATE) [Concomitant]

REACTIONS (5)
  - ABSCESS [None]
  - AGRANULOCYTOSIS [None]
  - FEBRILE NEUTROPENIA [None]
  - HERPES SIMPLEX [None]
  - OFF LABEL USE [None]
